FAERS Safety Report 18320986 (Version 1)
Quarter: 2020Q3

REPORT INFORMATION
  Report Type: Spontaneous
  Country: DE (occurrence: DE)
  Receive Date: 20200929
  Receipt Date: 20200929
  Transmission Date: 20201103
  Serious: Yes (Life-Threatening, Hospitalization)
  Sender: FDA-Public Use
  Company Number: DE-TEVA-2020-DE-1831516

PATIENT
  Age: 77 Year
  Sex: Female

DRUGS (13)
  1. SITAGLIPTIN [Concomitant]
     Active Substance: SITAGLIPTIN
     Dosage: 100 MILLIGRAM DAILY; 1?0?0?0
     Route: 048
  2. EISEN(II)IODAT [Concomitant]
     Dosage: 100 MILLIGRAM DAILY; 1?0?0?0
     Route: 048
  3. CARVEDILOL. [Suspect]
     Active Substance: CARVEDILOL
     Dosage: 12.5 MILLIGRAM DAILY; 1?0?1?0
     Route: 048
  4. DIGITOXIN [Suspect]
     Active Substance: DIGITOXIN
     Dosage: .07 MILLIGRAM DAILY; 1?0?0?0
     Route: 048
  5. METFORMIN [Concomitant]
     Active Substance: METFORMIN HYDROCHLORIDE
     Dosage: 1 DOSAGE FORMS DAILY; 1000 MG, 0.5?0?0.5?0
     Route: 048
  6. METAMIZOL [Concomitant]
     Active Substance: METAMIZOLE SODIUM
     Dosage: 500 MILLIGRAM DAILY; 1?0?0?0
     Route: 048
  7. TORASEMID [Suspect]
     Active Substance: TORSEMIDE
     Dosage: 10 MILLIGRAM DAILY;  1?0?0?0
     Route: 048
  8. LEVOTHYROXIN?NATRIUM [Concomitant]
     Active Substance: LEVOTHYROXINE SODIUM
     Dosage: 125 MICROGRAM DAILY; 1?0?0?0
     Route: 048
  9. ZOLPIDEM [Concomitant]
     Active Substance: ZOLPIDEM TARTRATE
     Dosage: 10 MILLIGRAM DAILY; 0?0?0?1
     Route: 048
  10. LACTULOSE. [Concomitant]
     Active Substance: LACTULOSE
     Dosage: 10 ML DAILY; 1?0?0?0, JUICE
     Route: 048
  11. SPIRONOLACTON [Suspect]
     Active Substance: SPIRONOLACTONE
     Dosage: 50 MILLIGRAM DAILY; 1?0?0?0
     Route: 048
  12. EDOXABAN [Concomitant]
     Active Substance: EDOXABAN TOSYLATE
     Dosage: 30 MILLIGRAM DAILY; 1?0?0?0
     Route: 048
  13. PANTOPRAZOL [Concomitant]
     Active Substance: PANTOPRAZOLE SODIUM
     Dosage: 40 MILLIGRAM DAILY; 1?0?0?0
     Route: 048

REACTIONS (9)
  - Condition aggravated [Recovering/Resolving]
  - Palpitations [Recovering/Resolving]
  - General physical health deterioration [Recovering/Resolving]
  - Syncope [Unknown]
  - Product monitoring error [Unknown]
  - Ventricular arrhythmia [Recovering/Resolving]
  - Bradycardia [Recovering/Resolving]
  - Arrhythmia [Recovering/Resolving]
  - Tachycardia [Recovering/Resolving]

NARRATIVE: CASE EVENT DATE: 20200301
